FAERS Safety Report 5625695-6 (Version None)
Quarter: 2008Q1

REPORT INFORMATION
  Report Type: 
  Country: None (occurrence: None)
  Receive Date: 20080214
  Receipt Date: 20080206
  Transmission Date: 20080703
  Serious: Yes (Death)
  Sender: FDA-Public Use
  Company Number: US-BRACCO-BDI-008969

PATIENT
  Age: 77 Year
  Sex: Female

DRUGS (8)
  1. ISOVUE-128 [Suspect]
     Indication: COMPUTERISED TOMOGRAM
     Route: 042
     Dates: start: 20061218, end: 20061218
  2. ZOSYN [Concomitant]
     Route: 065
  3. VANCOMYCIN [Concomitant]
     Route: 065
  4. HYDROCORTISONE [Concomitant]
     Route: 065
  5. DOPAMINE HCL [Concomitant]
     Dosage: 10 MCG/MIN
     Route: 065
     Dates: start: 20061218
  6. ATROPINE [Concomitant]
     Route: 065
     Dates: start: 20061218
  7. ASPIRIN [Concomitant]
     Route: 065
  8. FLUID [Concomitant]
     Route: 042
     Dates: start: 20061218, end: 20061218

REACTIONS (4)
  - BLOOD PRESSURE DECREASED [None]
  - CARDIAC ARREST [None]
  - CONFUSIONAL STATE [None]
  - HEART RATE DECREASED [None]
